FAERS Safety Report 6854918-0 (Version None)
Quarter: 2010Q3

REPORT INFORMATION
  Report Type: 
  Country: None (occurrence: None)
  Receive Date: 20100717
  Receipt Date: 20080122
  Transmission Date: 20110219
  Serious: No
  Sender: FDA-Public Use
  Company Number: US-PFIZER INC-2008003798

PATIENT
  Sex: Female
  Weight: 97.52 kg

DRUGS (3)
  1. CHANTIX [Suspect]
     Indication: SMOKING CESSATION THERAPY
     Dosage: BID: EVERY DAY
     Route: 048
     Dates: start: 20071201, end: 20080101
  2. LITHIUM [Concomitant]
     Indication: BIPOLAR DISORDER
  3. TRAZODONE HYDROCHLORIDE [Concomitant]

REACTIONS (3)
  - DEHYDRATION [None]
  - DIARRHOEA [None]
  - VOMITING [None]
